FAERS Safety Report 9409540 (Version 1)
Quarter: 2013Q3

REPORT INFORMATION
  Report Type: Report from Study
  Country: US (occurrence: US)
  Receive Date: 20130719
  Receipt Date: 20130719
  Transmission Date: 20140515
  Serious: Yes (Other)
  Sender: FDA-Public Use
  Company Number: US-ROCHE-1250196

PATIENT
  Age: 43 Year
  Sex: Male

DRUGS (1)
  1. ZELBORAF [Suspect]
     Indication: METASTATIC MALIGNANT MELANOMA
     Route: 048
     Dates: start: 20130129

REACTIONS (6)
  - Haemoptysis [Recovered/Resolved]
  - Cough [Unknown]
  - Haemoptysis [Unknown]
  - Rash [Recovered/Resolved]
  - Anxiety [Unknown]
  - Tenderness [Unknown]
